FAERS Safety Report 11992821 (Version 1)
Quarter: 2016Q1

REPORT INFORMATION
  Report Type: Spontaneous
  Country: US (occurrence: None)
  Receive Date: 20160202
  Receipt Date: 20160202
  Transmission Date: 20160526
  Serious: Yes (Death)
  Sender: FDA-Public Use
  Company Number: None

PATIENT
  Age: 60 Year
  Sex: Male
  Weight: 110.9 kg

DRUGS (1)
  1. CAPECITABINE 500MG TEVA [Suspect]
     Active Substance: CAPECITABINE
     Indication: COLON CANCER
     Dosage: QD, 14DAYS ON,  7 OFF
     Route: 048
     Dates: start: 20150807, end: 20151119

REACTIONS (1)
  - Death [None]

NARRATIVE: CASE EVENT DATE: 20151203
